FAERS Safety Report 8788984 (Version 1)
Quarter: 2012Q4

REPORT INFORMATION
  Report Type: 
  Country: US (occurrence: US)
  Receive Date: 20120917
  Receipt Date: 20120917
  Transmission Date: 20130627
  Serious: No
  Sender: FDA-Public Use
  Company Number: US-009507513-1207USA010828

PATIENT

DRUGS (7)
  1. PEGINTRON [Suspect]
     Dosage: 80 Microgram/ 0.15 ml vial, qw
  2. RIBAPAK [Concomitant]
     Dosage: 1000 units, qd
  3. XANAX [Concomitant]
     Dosage: 1 mg, UNK
  4. AMBIEN [Concomitant]
     Dosage: 10 mg, UNK
  5. LISINOPRIL [Concomitant]
     Dosage: 2.5 mg, UNK
  6. VITAMINS (UNSPECIFIED) [Concomitant]
  7. MELOXICAM [Concomitant]

REACTIONS (3)
  - Injection site erythema [Unknown]
  - Influenza like illness [Unknown]
  - Chills [Unknown]
